FAERS Safety Report 9045407 (Version 1)
Quarter: 2013Q1

REPORT INFORMATION
  Report Type: Report from Study
  Country: US (occurrence: US)
  Receive Date: 20130131
  Receipt Date: 20130131
  Transmission Date: 20140127
  Serious: No
  Sender: FDA-Public Use
  Company Number: US-ABBOTT-12P-163-1004816-00

PATIENT
  Age: 13 Year
  Sex: Female

DRUGS (7)
  1. HUMIRA [Suspect]
     Indication: JUVENILE IDIOPATHIC ARTHRITIS
     Dosage: INITIAL DOSE
     Dates: start: 20121031
  2. PREDNISONE [Concomitant]
     Indication: JUVENILE IDIOPATHIC ARTHRITIS
  3. MELOXICAM [Concomitant]
     Indication: MULTIPLE EPIPHYSEAL DYSPLASIA
  4. NEXIUM [Concomitant]
     Indication: GASTROOESOPHAGEAL REFLUX DISEASE
  5. MULTIPLE VITAMINS [Concomitant]
     Indication: PRODUCT USED FOR UNKNOWN INDICATION
  6. VITAMIN D [Concomitant]
     Indication: PRODUCT USED FOR UNKNOWN INDICATION
  7. CALCIUM [Concomitant]
     Indication: PRODUCT USED FOR UNKNOWN INDICATION

REACTIONS (3)
  - Poor quality sleep [Not Recovered/Not Resolved]
  - Nightmare [Not Recovered/Not Resolved]
  - Migraine [Not Recovered/Not Resolved]
